FAERS Safety Report 11439126 (Version 1)
Quarter: 2015Q3

REPORT INFORMATION
  Report Type: Spontaneous
  Country: US (occurrence: US)
  Receive Date: 20150901
  Receipt Date: 20150901
  Transmission Date: 20151125
  Serious: Yes (Other)
  Sender: FDA-Public Use
  Company Number: US-ROCHE-1118656

PATIENT
  Age: 35 Year
  Sex: Female

DRUGS (2)
  1. PEGASYS [Suspect]
     Active Substance: PEGINTERFERON ALFA-2A
     Indication: CHRONIC HEPATITIS C
     Route: 058
     Dates: start: 20120831
  2. RIBAVIRIN. [Suspect]
     Active Substance: RIBAVIRIN
     Indication: CHRONIC HEPATITIS C
     Dosage: IN DIVIDED DOSES 400/400
     Route: 065
     Dates: start: 20120831

REACTIONS (4)
  - Dry mouth [Unknown]
  - Dry eye [Unknown]
  - Pain [Unknown]
  - Fungal infection [Unknown]

NARRATIVE: CASE EVENT DATE: 20120902
